FAERS Safety Report 5658184-3 (Version None)
Quarter: 2008Q1

REPORT INFORMATION
  Report Type: 
  Country: None (occurrence: None)
  Receive Date: 20080306
  Receipt Date: 20080225
  Transmission Date: 20080703
  Serious: Yes (Hospitalization)
  Sender: FDA-Public Use
  Company Number: 2008SP000403

PATIENT
  Age: 76 Year
  Sex: Female

DRUGS (10)
  1. XOPENEX [Suspect]
     Indication: EMPHYSEMA
     Dosage: INHALATION; 1.25 MG/3ML; INHALATION; 0.63 MG/3ML; TID; INHALATION
     Route: 055
     Dates: end: 20070101
  2. GEMFIBROZIL [Concomitant]
  3. POTASSIUM CHLORIDE [Concomitant]
  4. OXYDOTYNIN [Concomitant]
  5. PROTONIX [Concomitant]
  6. LIPITOR [Concomitant]
  7. FOLIC ACID [Concomitant]
  8. PREMARIN [Concomitant]
  9. PAROXETINE HCL [Concomitant]
  10. ARICEPT [Concomitant]

REACTIONS (2)
  - SEPSIS [None]
  - TREMOR [None]
